FAERS Safety Report 6567883-0 (Version None)
Quarter: 2010Q1

REPORT INFORMATION
  Report Type: 
  Country: None (occurrence: None)
  Receive Date: 20100203
  Receipt Date: 20100122
  Transmission Date: 20100710
  Serious: Yes (Other)
  Sender: FDA-Public Use
  Company Number: PHHY2010BR03659

PATIENT
  Sex: Female
  Weight: 50 kg

DRUGS (5)
  1. TEGRETOL-XR [Suspect]
     Dosage: 200 MG, UNK
     Route: 048
  2. TEGRETOL-XR [Suspect]
     Dosage: 400 MG (1 TABLET)/DAY
     Route: 048
     Dates: start: 20080101
  3. TEGRETOL [Suspect]
     Dosage: 200 MG, UNK
  4. HIDANTAL [Concomitant]
  5. PURAN T4 [Concomitant]
     Dosage: 1 DF/DAY
     Route: 048
     Dates: start: 20091101

REACTIONS (6)
  - BLOOD CHOLESTEROL INCREASED [None]
  - BREAST CANCER [None]
  - HEADACHE [None]
  - MASTECTOMY [None]
  - THYROID NEOPLASM [None]
  - THYROIDECTOMY [None]
